FAERS Safety Report 5319323-7 (Version None)
Quarter: 2007Q2

REPORT INFORMATION
  Report Type: 
  Country: None (occurrence: None)
  Receive Date: 20070508
  Receipt Date: 20070426
  Transmission Date: 20071010
  Serious: Yes (Other)
  Sender: FDA-Public Use
  Company Number: US-PFIZER INC-2007035098

PATIENT
  Sex: Male
  Weight: 73.636 kg

DRUGS (6)
  1. CHANTIX [Suspect]
     Indication: SMOKING CESSATION THERAPY
     Dosage: FREQ:DAILY
  2. NOVOLOG [Concomitant]
  3. INSULIN [Concomitant]
  4. METFORMIN HCL [Concomitant]
  5. ANTIHYPERTENSIVES [Concomitant]
     Indication: BLOOD PRESSURE
  6. CHOLESTEROL [Concomitant]
     Indication: BLOOD CHOLESTEROL

REACTIONS (4)
  - BLOOD GLUCOSE INCREASED [None]
  - DRY THROAT [None]
  - DYSPHONIA [None]
  - INSOMNIA [None]
